FAERS Safety Report 9518168 (Version 1)
Quarter: 2013Q3

REPORT INFORMATION
  Report Type: Spontaneous
  Country: US (occurrence: None)
  Receive Date: 20130910
  Receipt Date: 20130910
  Transmission Date: 20140515
  Serious: Yes (Disabling)
  Sender: FDA-Public Use
  Company Number: None

PATIENT
  Age: 28 Year
  Sex: Female
  Weight: 113.4 kg

DRUGS (1)
  1. AVELOX [Suspect]
     Route: 048
     Dates: start: 20111104, end: 20111114

REACTIONS (12)
  - Bone pain [None]
  - Pain [None]
  - Dysstasia [None]
  - Neck pain [None]
  - Paraesthesia [None]
  - Neuralgia [None]
  - Autonomic neuropathy [None]
  - Blood pressure abnormal [None]
  - Respiratory disorder [None]
  - Urinary tract disorder [None]
  - Visual impairment [None]
  - Memory impairment [None]
